FAERS Safety Report 11113838 (Version 1)
Quarter: 2015Q2

REPORT INFORMATION
  Report Type: Report from Study
  Country: GB (occurrence: GB)
  Receive Date: 20150514
  Receipt Date: 20150514
  Transmission Date: 20150821
  Serious: Yes (Hospitalization)
  Sender: FDA-Public Use
  Company Number: GB-ABBVIE-15P-167-1388561-00

PATIENT
  Age: 55 Year
  Sex: Female
  Weight: 92 kg

DRUGS (6)
  1. RITONAVIR. [Suspect]
     Active Substance: RITONAVIR
     Indication: HIV INFECTION
     Route: 048
     Dates: start: 20070904
  2. VENTOLIN [Concomitant]
     Active Substance: ALBUTEROL SULFATE
     Indication: ASTHMA
     Dosage: AS NEEDED
     Route: 055
  3. EMTRICITABINE W/TENOFOVIR [Concomitant]
     Active Substance: EMTRICITABINE\TENOFOVIR DISOPROXIL
     Indication: HIV INFECTION
     Route: 048
     Dates: start: 20070904
  4. OLANZAPINE. [Concomitant]
     Active Substance: OLANZAPINE
     Indication: DEPRESSION
     Route: 048
  5. ATAZANAVIR [Concomitant]
     Active Substance: ATAZANAVIR
     Indication: HIV INFECTION
     Route: 048
     Dates: start: 20070904
  6. MODULITE [Concomitant]
     Indication: ASTHMA
     Dosage: AS NEEDED
     Route: 055

REACTIONS (2)
  - Asthma [Recovered/Resolved]
  - Asthma [Recovered/Resolved]

NARRATIVE: CASE EVENT DATE: 201312
